FAERS Safety Report 13586742 (Version 1)
Quarter: 2017Q2

REPORT INFORMATION
  Report Type: Spontaneous
  Country: US (occurrence: US)
  Receive Date: 20170526
  Receipt Date: 20170526
  Transmission Date: 20170830
  Serious: No
  Sender: FDA-Public Use
  Company Number: US-ROCHE-1473862

PATIENT
  Age: 23 Year
  Sex: Male

DRUGS (11)
  1. PROBENECID. [Concomitant]
     Active Substance: PROBENECID
     Dosage: 2 HOURS AFTER CIDOFOVIR INFUSION
     Route: 048
  2. FAMCICLOVIR. [Concomitant]
     Active Substance: FAMCICLOVIR
     Indication: TORTICOLLIS
     Route: 048
  3. VALGANCICLOVIR. [Suspect]
     Active Substance: VALGANCICLOVIR
     Indication: TORTICOLLIS
     Route: 048
  4. FAMCICLOVIR. [Concomitant]
     Active Substance: FAMCICLOVIR
     Indication: TORTICOLLIS
  5. VALGANCICLOVIR. [Suspect]
     Active Substance: VALGANCICLOVIR
     Indication: TORTICOLLIS
     Route: 048
  6. CIDOFOVIR. [Concomitant]
     Active Substance: CIDOFOVIR
     Indication: TORTICOLLIS
     Route: 042
     Dates: start: 20130220, end: 20131001
  7. CIDOFOVIR. [Concomitant]
     Active Substance: CIDOFOVIR
     Indication: TORTICOLLIS
  8. PROBENECID. [Concomitant]
     Active Substance: PROBENECID
     Dosage: 2 HOURS LATER
     Route: 048
  9. ONDANSETRON [Concomitant]
     Active Substance: ONDANSETRON
     Dosage: THE DAY BEFORE, THE DAY OF, AND THE DAY AFTER EACH CIDOFOVIR INFUSION
     Route: 048
  10. VALGANCICLOVIR. [Suspect]
     Active Substance: VALGANCICLOVIR
     Route: 048
     Dates: start: 20131230
  11. PROBENECID. [Concomitant]
     Active Substance: PROBENECID
     Dosage: 3 HOURS BEFORE CIDOFOVIR INFUSION
     Route: 048

REACTIONS (1)
  - Hepatotoxicity [Unknown]
